FAERS Safety Report 5468556-8 (Version None)
Quarter: 2007Q3

REPORT INFORMATION
  Report Type: 
  Country: None (occurrence: None)
  Receive Date: 20070926
  Receipt Date: 20070924
  Transmission Date: 20080115
  Serious: Yes (Other)
  Sender: FDA-Public Use
  Company Number: US-BRISTOL-MYERS SQUIBB COMPANY-13917844

PATIENT
  Age: 8 Year
  Sex: Male

DRUGS (2)
  1. METHOTREXATE [Suspect]
     Indication: BURKITT'S LYMPHOMA
     Dosage: DOSE VALUE 3 G/M2. DRUG WAS ALSO TAKEN INTRATHECALLY ON DAY2.
     Route: 042
  2. IODINIZED CONTRAST MEDIA [Interacting]
     Indication: COMPUTERISED TOMOGRAM
     Route: 042

REACTIONS (10)
  - BLOOD CREATININE INCREASED [None]
  - DRUG INTERACTION [None]
  - ENCEPHALITIS [None]
  - GRAND MAL CONVULSION [None]
  - HYPERTENSION [None]
  - MUCOSAL INFLAMMATION [None]
  - NERVOUS SYSTEM DISORDER [None]
  - NEUTROPENIA [None]
  - PYREXIA [None]
  - VOMITING [None]
